FAERS Safety Report 9711013 (Version 2)
Quarter: 2013Q4

REPORT INFORMATION
  Report Type: Spontaneous
  Country: US (occurrence: US)
  Receive Date: 20131126
  Receipt Date: 20131126
  Transmission Date: 20140711
  Serious: No
  Sender: FDA-Public Use
  Company Number: US-BRISTOL-MYERS SQUIBB COMPANY-18589937

PATIENT
  Age: 73 Year
  Sex: Female
  Weight: 86.17 kg

DRUGS (4)
  1. BYDUREON [Suspect]
     Indication: TYPE 2 DIABETES MELLITUS
     Dosage: LONG ACTING RELEASE 2 MG,22FEB13
     Route: 058
     Dates: start: 201301
  2. LANTUS [Concomitant]
     Indication: TYPE 2 DIABETES MELLITUS
     Dosage: 1DF: 50U, 30U, EACH EVENING
     Route: 058
  3. HUMALOG [Concomitant]
     Indication: TYPE 2 DIABETES MELLITUS
     Dosage: 1DF: 30U, 20U
     Route: 058
  4. LIPITOR [Concomitant]

REACTIONS (5)
  - Weight decreased [Recovered/Resolved]
  - Off label use [Not Recovered/Not Resolved]
  - Hunger [Not Recovered/Not Resolved]
  - Decreased appetite [Recovered/Resolved]
  - Blood glucose decreased [Recovered/Resolved]
